FAERS Safety Report 6152052-9 (Version None)
Quarter: 2009Q2

REPORT INFORMATION
  Report Type: 
  Country: None (occurrence: None)
  Receive Date: 20090410
  Receipt Date: 20090407
  Transmission Date: 20091009
  Serious: Yes (Other)
  Sender: FDA-Public Use
  Company Number: ES-ROXANE LABORATORIES, INC.-2009-RO-00349RO

PATIENT
  Age: 49 Year
  Sex: Male

DRUGS (2)
  1. MORPHINE [Suspect]
     Indication: CHEST PAIN
  2. NITROGLYCERIN [Suspect]
     Indication: CHEST PAIN

REACTIONS (1)
  - DRUG INEFFECTIVE [None]
